FAERS Safety Report 5272780-7 (Version None)
Quarter: 2007Q1

REPORT INFORMATION
  Report Type: 
  Country: None (occurrence: None)
  Receive Date: 20070322
  Receipt Date: 20070316
  Transmission Date: 20070707
  Serious: Yes (Other)
  Sender: FDA-Public Use
  Company Number: 2007/00234

PATIENT
  Sex: Female

DRUGS (1)
  1. SERETIDE [Suspect]
     Indication: DRUG USE FOR UNKNOWN INDICATION
     Route: 055

REACTIONS (5)
  - ADRENAL INSUFFICIENCY [None]
  - GLAUCOMA [None]
  - LOWER LIMB FRACTURE [None]
  - MUSCLE SPASMS [None]
  - OSTEOARTHRITIS [None]
